FAERS Safety Report 8156245-0 (Version None)
Quarter: 2012Q1

REPORT INFORMATION
  Report Type: 
  Country: None (occurrence: None)
  Receive Date: 20120222
  Receipt Date: 20120216
  Transmission Date: 20120608
  Serious: Yes (Other)
  Sender: FDA-Public Use
  Company Number: IT-SANOFI-AVENTIS-2012SA010298

PATIENT
  Age: 3 Year
  Sex: Male

DRUGS (1)
  1. SODIUM FERRIC GLUCONATE COMPLEX [Suspect]
     Dosage: FORM: VIAL
     Route: 041
     Dates: start: 20120109, end: 20120109

REACTIONS (4)
  - OBSTRUCTIVE AIRWAYS DISORDER [None]
  - VOMITING [None]
  - CRYING [None]
  - ANGIOEDEMA [None]
